FAERS Safety Report 4648062-0 (Version None)
Quarter: 2005Q2

REPORT INFORMATION
  Report Type: 
  Country: None (occurrence: None)
  Receive Date: 20050331
  Receipt Date: 20041217
  Transmission Date: 20051028
  Serious: No
  Sender: FDA-Public Use
  Company Number: 04P-163-0284011-00

PATIENT
  Age: 93 Year
  Sex: Female
  Weight: 50.8029 kg

DRUGS (4)
  1. HUMIRA [Suspect]
     Indication: RHEUMATOID ARTHRITIS
     Dosage: 40 MG, 1 IN 2 WK, SUBCUTANEOUS
     Route: 058
     Dates: start: 20030701, end: 20040801
  2. RISEDRONATE SODIUM [Concomitant]
  3. PARACETAMOL [Concomitant]
  4. CELECOXIB [Concomitant]

REACTIONS (5)
  - DIZZINESS [None]
  - NODULE [None]
  - ORAL PAIN [None]
  - RASH [None]
  - SKIN PAPILLOMA [None]
